FAERS Safety Report 14623318 (Version 2)
Quarter: 2018Q1

REPORT INFORMATION
  Report Type: Spontaneous
  Country: US (occurrence: US)
  Receive Date: 20180312
  Receipt Date: 20180330
  Transmission Date: 20180509
  Serious: No
  Sender: FDA-Public Use
  Company Number: US-009507513-1803USA003217

PATIENT
  Sex: Female

DRUGS (1)
  1. JANUMET XR [Suspect]
     Active Substance: METFORMIN HYDROCHLORIDE\SITAGLIPTIN PHOSPHATE
     Dosage: UNK, ONCE DAILY
     Route: 048

REACTIONS (4)
  - No adverse event [Unknown]
  - Stress [Unknown]
  - Gastric disorder [Unknown]
  - Drug dose omission [Unknown]
